FAERS Safety Report 17246255 (Version 1)
Quarter: 2020Q1

REPORT INFORMATION
  Report Type: Spontaneous
  Country: US (occurrence: US)
  Receive Date: 20200107
  Receipt Date: 20200107
  Transmission Date: 20200409
  Serious: Yes (Other)
  Sender: FDA-Public Use
  Company Number: None

PATIENT
  Age: 72 Year
  Sex: Male
  Weight: 72.57 kg

DRUGS (4)
  1. 24 MCI TECHNETIUM 99M MDP [Suspect]
     Active Substance: TECHNETIUM TC-99M MEDRONATE
  2. HERBAL TEAS [Concomitant]
     Active Substance: HERBALS
  3. MULTIVITAMIN [Concomitant]
     Active Substance: VITAMINS
  4. CURCUMIN [Concomitant]
     Active Substance: CURCUMIN

REACTIONS (3)
  - Pain in extremity [None]
  - Arthralgia [None]
  - Groin pain [None]

NARRATIVE: CASE EVENT DATE: 20191031
